FAERS Safety Report 5441387-0 (Version None)
Quarter: 2007Q3

REPORT INFORMATION
  Report Type: 
  Country: None (occurrence: None)
  Receive Date: 20070903
  Receipt Date: 20070828
  Transmission Date: 20080115
  Serious: Yes (Hospitalization)
  Sender: FDA-Public Use
  Company Number: PHRM2007FR01511

PATIENT
  Age: 71 Year
  Sex: Male

DRUGS (4)
  1. VALSARTAN AND HYDROCHLOROTHIAZIDE [Suspect]
     Indication: HYPERTENSION
     Dosage: 1 DF, QD
     Route: 048
     Dates: start: 19980720, end: 20070330
  2. RILMENIDINE [Concomitant]
     Indication: HYPERTENSION
     Route: 048
     Dates: start: 20060502
  3. NOCTRAN [Concomitant]
     Indication: INSOMNIA
     Dates: start: 19980831
  4. SERETIDE [Concomitant]
     Indication: ASTHMA
     Route: 048
     Dates: start: 20010313

REACTIONS (4)
  - ANTINUCLEAR ANTIBODY POSITIVE [None]
  - ANTIPHOSPHOLIPID ANTIBODIES POSITIVE [None]
  - COAGULATION FACTOR VIII LEVEL DECREASED [None]
  - PURPURA [None]
